FAERS Safety Report 18461793 (Version 1)
Quarter: 2020Q4

REPORT INFORMATION
  Report Type: Spontaneous
  Country: US (occurrence: US)
  Receive Date: 20201103
  Receipt Date: 20201103
  Transmission Date: 20210114
  Serious: Yes (Hospitalization)
  Sender: FDA-Public Use
  Company Number: None

PATIENT
  Age: 26 Month
  Sex: Female

DRUGS (1)
  1. MIGLUSTAT ++ [Suspect]
     Active Substance: MIGLUSTAT
     Indication: GM2 GANGLIOSIDOSIS
     Route: 048
     Dates: start: 20200411

REACTIONS (1)
  - Surgery [None]

NARRATIVE: CASE EVENT DATE: 20200820
